FAERS Safety Report 17250863 (Version 1)
Quarter: 2020Q1

REPORT INFORMATION
  Report Type: Spontaneous
  Country: US (occurrence: US)
  Receive Date: 20200109
  Receipt Date: 20200109
  Transmission Date: 20200409
  Serious: No
  Sender: FDA-Public Use
  Company Number: US-AUROBINDO-AUR-APL-2019-041490

PATIENT

DRUGS (3)
  1. OXYCODONE TABLET [Suspect]
     Active Substance: OXYCODONE
     Indication: BACK PAIN
     Dosage: 5 MILLIGRAM, TAKES AS NEEDED, DOESN^T TAKE OVE?R 4 PER DAY, TAKES ABOUT EVERY 6 HOURS
     Route: 065
  2. LYRICA [Concomitant]
     Active Substance: PREGABALIN
     Indication: NERVE INJURY
     Dosage: 175 MILLIGRAM, DAILY
     Route: 065
  3. GABAPENTIN. [Concomitant]
     Active Substance: GABAPENTIN
     Indication: PRODUCT USED FOR UNKNOWN INDICATION
     Dosage: UNK
     Route: 065

REACTIONS (1)
  - Drug ineffective [Unknown]
